FAERS Safety Report 9321710 (Version 1)
Quarter: 2013Q2

REPORT INFORMATION
  Report Type: Spontaneous
  Country: JP (occurrence: None)
  Receive Date: 20130529
  Receipt Date: 20130529
  Transmission Date: 20140414
  Serious: Yes (Hospitalization)
  Sender: FDA-Public Use
  Company Number: ENT 2013-0091

PATIENT
  Age: 63 Year
  Sex: Female

DRUGS (2)
  1. COMTAN (ENTACAPONE) [Suspect]
     Indication: PARKINSONISM
     Route: 048
  2. NEODOPASTON [Concomitant]

REACTIONS (2)
  - Parkinson^s disease [None]
  - Disease progression [None]
